FAERS Safety Report 16511077 (Version 1)
Quarter: 2019Q3

REPORT INFORMATION
  Report Type: Spontaneous
  Country: US (occurrence: US)
  Receive Date: 20190521
  Receipt Date: 20190521
  Transmission Date: 20191004
  Serious: Yes (Other)
  Sender: FDA-Public Use
  Company Number: None

PATIENT
  Age: 65 Year
  Sex: Female

DRUGS (1)
  1. OCALIVA [Suspect]
     Active Substance: OBETICHOLIC ACID
     Indication: DRUG THERAPY
     Route: 048
     Dates: start: 20180815

REACTIONS (3)
  - Pain [None]
  - Product dose omission [None]
  - Manufacturing product shipping issue [None]

NARRATIVE: CASE EVENT DATE: 20190520
